FAERS Safety Report 8509726-1 (Version None)
Quarter: 2012Q3

REPORT INFORMATION
  Report Type: 
  Country: None (occurrence: None)
  Receive Date: 20120713
  Receipt Date: 20120710
  Transmission Date: 20120928
  Serious: No
  Sender: FDA-Public Use
  Company Number: US-B.I. PHARMACEUTICALS,INC./RIDGEFIELD-2012-BP-13366BP

PATIENT
  Sex: Male
  Weight: 90.72 kg

DRUGS (9)
  1. SPIRONOLACTONE [Concomitant]
     Indication: HYPERTENSION
     Dosage: 25 MG
     Route: 048
  2. CRESTOR [Concomitant]
     Indication: BLOOD CHOLESTEROL
     Dosage: 10 MG
     Route: 048
  3. PRADAXA [Suspect]
     Indication: ATRIAL FIBRILLATION
     Dosage: 300 MG
     Route: 048
     Dates: start: 20110529
  4. ATENOLOL [Concomitant]
     Indication: HYPERTENSION
     Dosage: 50 MG
     Route: 048
  5. ATENOLOL [Concomitant]
     Indication: ATRIAL FIBRILLATION
  6. HYDROCHLOROTHIAZIDE [Concomitant]
     Indication: HYPERTENSION
     Dosage: 25 MG
     Route: 048
  7. TESTOSTERONE [Suspect]
     Indication: PROPHYLAXIS
  8. COREG [Concomitant]
     Indication: ATRIAL FIBRILLATION
  9. COREG [Concomitant]
     Indication: HYPERTENSION
     Dosage: 75 MG
     Route: 048

REACTIONS (2)
  - HYPERHIDROSIS [None]
  - INSOMNIA [None]
